FAERS Safety Report 5620968-5 (Version None)
Quarter: 2008Q1

REPORT INFORMATION
  Report Type: 
  Country: None (occurrence: None)
  Receive Date: 20080208
  Receipt Date: 20080129
  Transmission Date: 20080703
  Serious: Yes (Other)
  Sender: FDA-Public Use
  Company Number: AU-PFIZER INC-2008009676

PATIENT
  Age: 55 Year
  Sex: Male

DRUGS (2)
  1. NORVASC [Suspect]
  2. MICARDIS [Concomitant]

REACTIONS (3)
  - OEDEMA PERIPHERAL [None]
  - PALPITATIONS [None]
  - WHEEZING [None]
